FAERS Safety Report 5017135-5 (Version None)
Quarter: 2006Q2

REPORT INFORMATION
  Report Type: 
  Country: None (occurrence: None)
  Receive Date: 20060525
  Receipt Date: 20060515
  Transmission Date: 20061013
  Serious: Yes (Hospitalization)
  Sender: FDA-Public Use
  Company Number: CLOF-10235

PATIENT

DRUGS (2)
  1. CLOLAR [Suspect]
     Indication: ACUTE LEUKAEMIA
  2. AMBISOME [Concomitant]

REACTIONS (3)
  - DISEASE PROGRESSION [None]
  - FEBRILE NEUTROPENIA [None]
  - PNEUMONIA FUNGAL [None]
